FAERS Safety Report 16355470 (Version 2)
Quarter: 2019Q2

REPORT INFORMATION
  Report Type: Spontaneous
  Country: CO (occurrence: CO)
  Receive Date: 20190525
  Receipt Date: 20190529
  Transmission Date: 20190711
  Serious: Yes (Death, Hospitalization, Other)
  Sender: FDA-Public Use
  Company Number: CO-UNITED THERAPEUTICS-UNT-2019-009180

PATIENT

DRUGS (14)
  1. LEVOTHYROXINE. [Concomitant]
     Active Substance: LEVOTHYROXINE
     Indication: HYPOTHYROIDISM
     Dosage: 100 ?G, EVERY 48 HOURS (MONDAY, WEDNESDAY AND FRIDAY)
     Route: 048
     Dates: start: 20190516, end: 20190519
  2. DIPIRONA [Concomitant]
     Active Substance: METAMIZOLE
     Indication: ANALGESIC THERAPY
     Dosage: 1 G, UNK (RESCUE)
     Route: 048
     Dates: start: 20190517, end: 20190519
  3. METOCLOPRAMIDE. [Concomitant]
     Active Substance: METOCLOPRAMIDE
     Indication: VOMITING
     Dosage: 10 MG, UNK (RESCUE)
     Route: 042
     Dates: start: 20190518, end: 20190519
  4. ACETYLSALICYLIC ACID [Concomitant]
     Active Substance: ASPIRIN
     Indication: ANTICOAGULANT THERAPY
     Dosage: 100 MG, QD
     Route: 048
     Dates: start: 20190516, end: 20190519
  5. LEVOTHYROXINE. [Concomitant]
     Active Substance: LEVOTHYROXINE
     Dosage: 150 ?G, EVERY 48 HOURS (TUESDAY, THURSDAY AND SATURDAY)
     Route: 048
     Dates: start: 20190516, end: 20190519
  6. REMODULIN [Suspect]
     Active Substance: TREPROSTINIL
     Indication: PULMONARY ARTERIAL HYPERTENSION
     Dosage: 0.016 ?G/KG, CONTINUING (INFUSION SPEED: 0.018ML/HR)
     Route: 058
     Dates: start: 20190417, end: 20190519
  7. OMEPRAZOLE. [Concomitant]
     Active Substance: OMEPRAZOLE
     Indication: PROPHYLAXIS
     Dosage: 20 MG, QD
     Route: 048
     Dates: start: 20190517, end: 20190519
  8. HEPARINA [Concomitant]
     Active Substance: HEPARIN SODIUM
     Indication: PROPHYLAXIS
     Dosage: 5000 IU, QD
     Route: 058
     Dates: start: 20190518, end: 20190519
  9. FUROSEMIDE. [Concomitant]
     Active Substance: FUROSEMIDE
     Indication: DIURETIC THERAPY
     Dosage: UNK
     Route: 042
     Dates: start: 20190518, end: 20190519
  10. HIDROMORFONA [Concomitant]
     Indication: ANALGESIC THERAPY
     Dosage: 0.1 G, UNK (RESCUE)
     Route: 048
     Dates: start: 20190518, end: 20190519
  11. SILDENAFIL. [Concomitant]
     Active Substance: SILDENAFIL
     Indication: PULMONARY HYPERTENSION
     Dosage: 100 MG, BID
     Route: 048
     Dates: start: 20190516, end: 20190519
  12. ACETAMINOFEN [Concomitant]
     Active Substance: ACETAMINOPHEN
     Indication: ANALGESIC THERAPY
     Dosage: 1 G, TID
     Route: 048
     Dates: start: 20190517, end: 20190519
  13. BOSENTAN. [Concomitant]
     Active Substance: BOSENTAN
     Indication: PULMONARY HYPERTENSION
     Dosage: 250 MG, BID
     Route: 048
     Dates: start: 20190517, end: 20190519
  14. LOVASTATINE [Concomitant]
     Active Substance: LOVASTATIN
     Indication: HYPOLIPIDAEMIA
     Dosage: 20 MG, QD
     Route: 048
     Dates: start: 20190516, end: 20190519

REACTIONS (3)
  - Pulmonary hypertension [Fatal]
  - Acute kidney injury [Unknown]
  - Respiratory failure [Fatal]

NARRATIVE: CASE EVENT DATE: 20190516
